FAERS Safety Report 4289019-1 (Version None)
Quarter: 2004Q1

REPORT INFORMATION
  Report Type: 
  Country: None (occurrence: None)
  Receive Date: 20040203
  Receipt Date: 20031114
  Transmission Date: 20041129
  Serious: No
  Sender: FDA-Public Use
  Company Number: 03P-163-0241581-00

PATIENT
  Age: 52 Year
  Sex: Male

DRUGS (2)
  1. VICODIN [Suspect]
     Indication: COLONOSCOPY
     Dosage: 13 TABLET ; 8 TABLET    :    1 IN 1 D, PER ORAL
     Route: 048
     Dates: start: 20031112, end: 20031112
  2. VICODIN [Suspect]
     Indication: COLONOSCOPY
     Dosage: 13 TABLET ; 8 TABLET    :    1 IN 1 D, PER ORAL
     Route: 048
     Dates: start: 20031113, end: 20031113

REACTIONS (2)
  - OVERDOSE [None]
  - VOMITING [None]
